FAERS Safety Report 8264909-3 (Version None)
Quarter: 2012Q2

REPORT INFORMATION
  Report Type: 
  Country: None (occurrence: None)
  Receive Date: 20120404
  Receipt Date: 20120324
  Transmission Date: 20120825
  Serious: Yes (Other)
  Sender: FDA-Public Use
  Company Number: 2012SP016121

PATIENT
  Sex: Female

DRUGS (2)
  1. PEG-INTRON [Suspect]
     Indication: HEPATITIS C
  2. RIBAVIRIN [Suspect]
     Indication: HEPATITIS C

REACTIONS (8)
  - SQUAMOUS CELL CARCINOMA OF SKIN [None]
  - SKIN FIBROSIS [None]
  - HEPATIC CIRRHOSIS [None]
  - MALAISE [None]
  - WEIGHT DECREASED [None]
  - HYPERKERATOSIS [None]
  - DIABETES MELLITUS [None]
  - DEHYDRATION [None]
